FAERS Safety Report 8313360-6 (Version None)
Quarter: 2012Q2

REPORT INFORMATION
  Report Type: 
  Country: None (occurrence: None)
  Receive Date: 20120426
  Receipt Date: 20120419
  Transmission Date: 20120825
  Serious: Yes (Other)
  Sender: FDA-Public Use
  Company Number: PHHY2012DE014857

PATIENT
  Sex: Female

DRUGS (2)
  1. GLEEVEC [Suspect]
     Indication: GASTROINTESTINAL STROMAL TUMOUR
     Dosage: 400 MG, DAILY
     Route: 048
  2. GLEEVEC [Suspect]
     Dosage: 400 MG, DAILY
     Route: 048

REACTIONS (6)
  - OSTEOPOROSIS [None]
  - BACK PAIN [None]
  - GASTROINTESTINAL STROMAL TUMOUR [None]
  - SPINAL FRACTURE [None]
  - NEOPLASM RECURRENCE [None]
  - METASTASES TO LIVER [None]
